FAERS Safety Report 8282949-5 (Version None)
Quarter: 2012Q2

REPORT INFORMATION
  Report Type: 
  Country: None (occurrence: None)
  Receive Date: 20120413
  Receipt Date: 20120329
  Transmission Date: 20120825
  Serious: Yes (Death)
  Sender: FDA-Public Use
  Company Number: US-JUTA GMBH-2012-05487

PATIENT
  Sex: Male
  Weight: 73.923 kg

DRUGS (1)
  1. DOXYCYCLINE HYCLATE [Suspect]
     Indication: ACNE
     Dosage: 1 TAB DAILY
     Route: 048
     Dates: start: 20110301, end: 20120229

REACTIONS (1)
  - COMPLETED SUICIDE [None]
